FAERS Safety Report 17444419 (Version 1)
Quarter: 2020Q1

REPORT INFORMATION
  Report Type: Spontaneous
  Country: US (occurrence: US)
  Receive Date: 20200221
  Receipt Date: 20200221
  Transmission Date: 20200409
  Serious: No
  Sender: FDA-Public Use
  Company Number: US-MYLANLABS-2020M1016245

PATIENT
  Sex: Female
  Weight: 79 kg

DRUGS (2)
  1. FENTANYL. [Suspect]
     Active Substance: FENTANYL
     Indication: NECK PAIN
     Dosage: UNK UNK, Q3D (EVERY 72 HOURS)
     Route: 062
     Dates: start: 20200118, end: 20200204
  2. FENTANYL. [Suspect]
     Active Substance: FENTANYL
     Indication: BACK PAIN

REACTIONS (1)
  - Drug ineffective [Recovered/Resolved]
